FAERS Safety Report 19062366 (Version 1)
Quarter: 2021Q1

REPORT INFORMATION
  Report Type: Report from Study
  Country: US (occurrence: US)
  Receive Date: 20210326
  Receipt Date: 20210326
  Transmission Date: 20210420
  Serious: Yes (Hospitalization)
  Sender: FDA-Public Use
  Company Number: US-JNJFOC-20210332514

PATIENT
  Age: 36 Year
  Sex: Female

DRUGS (4)
  1. SPRAVATO [Suspect]
     Active Substance: ESKETAMINE
     Indication: DEPRESSION
     Dosage: 13 TOTAL DOSES
     Dates: start: 20191212, end: 20200207
  2. SPRAVATO [Suspect]
     Active Substance: ESKETAMINE
     Dosage: 6 TOTAL DOSES
     Dates: start: 20200211, end: 20200228
  3. SPRAVATO [Suspect]
     Active Substance: ESKETAMINE
     Dosage: 19 TOTAL DOSES
     Dates: start: 20200303, end: 20200619
  4. SPRAVATO [Suspect]
     Active Substance: ESKETAMINE
     Dosage: 26 TOTAL DOSES
     Dates: start: 20200626, end: 20210108

REACTIONS (1)
  - COVID-19 [Unknown]
